FAERS Safety Report 6244734-5 (Version None)
Quarter: 2009Q2

REPORT INFORMATION
  Report Type: 
  Country: None (occurrence: None)
  Receive Date: 20090623
  Receipt Date: 20090623
  Transmission Date: 20091009
  Serious: No
  Sender: FDA-Public Use
  Company Number: None

PATIENT
  Age: 40 Year
  Sex: Female
  Weight: 74.8435 kg

DRUGS (1)
  1. ZICAM NASAL GEL .5 FL OZ BOTTLE ZINCUM GLUCONICUM 2X MATRIXX INITIATIV [Suspect]
     Indication: NASOPHARYNGITIS
     Dosage: ONE SPRAY INTO EACH NOSTRIL USED ONLY ONCE NASAL
     Route: 045
     Dates: start: 20080212, end: 20080212

REACTIONS (3)
  - AGEUSIA [None]
  - ANOSMIA [None]
  - NASAL DISCOMFORT [None]
